FAERS Safety Report 6809382-4 (Version None)
Quarter: 2010Q2

REPORT INFORMATION
  Report Type: 
  Country: None (occurrence: None)
  Receive Date: 20100630
  Receipt Date: 20100618
  Transmission Date: 20101027
  Serious: Yes (Hospitalization)
  Sender: FDA-Public Use
  Company Number: IT-CELGENEUS-083-21880-10061987

PATIENT
  Sex: Male

DRUGS (2)
  1. REVLIMID [Suspect]
     Indication: MULTIPLE MYELOMA
     Route: 048
     Dates: start: 20100531, end: 20100531
  2. REVLIMID [Suspect]
     Route: 048
     Dates: start: 20100505, end: 20100505

REACTIONS (4)
  - ACUTE RESPIRATORY FAILURE [None]
  - BRONCHOPNEUMONIA [None]
  - NEUTROPENIA [None]
  - PANCYTOPENIA [None]
